FAERS Safety Report 6181245-X (Version None)
Quarter: 2009Q2

REPORT INFORMATION
  Report Type: 
  Country: None (occurrence: None)
  Receive Date: 20090506
  Receipt Date: 20090430
  Transmission Date: 20091009
  Serious: No
  Sender: FDA-Public Use
  Company Number: US-B.I. PHARMACEUTICALS,INC./RIDGEFIELD-2008-BP-03242BP

PATIENT
  Sex: Male

DRUGS (2)
  1. MIRAPEX [Suspect]
     Indication: PARKINSON'S DISEASE
     Dates: start: 19990604
  2. MIRAPEX [Suspect]
     Dosage: 3MG

REACTIONS (11)
  - DEPRESSION [None]
  - DIZZINESS [None]
  - EMOTIONAL DISTRESS [None]
  - FEELING ABNORMAL [None]
  - FLUSHING [None]
  - INJURY [None]
  - MENTAL DISORDER [None]
  - PATHOLOGICAL GAMBLING [None]
  - SOMNOLENCE [None]
  - SUDDEN ONSET OF SLEEP [None]
  - SUICIDAL IDEATION [None]
